FAERS Safety Report 16261895 (Version 2)
Quarter: 2019Q3

REPORT INFORMATION
  Report Type: Spontaneous
  Country: IT (occurrence: IT)
  Receive Date: 20190501
  Receipt Date: 20190731
  Transmission Date: 20191004
  Serious: Yes (Hospitalization)
  Sender: FDA-Public Use
  Company Number: IT-JNJFOC-20190439379

PATIENT
  Age: 41 Year
  Sex: Male
  Weight: 70 kg

DRUGS (4)
  1. STELARA [Suspect]
     Active Substance: USTEKINUMAB
     Indication: PSORIASIS
     Route: 058
  2. STELARA [Suspect]
     Active Substance: USTEKINUMAB
     Indication: CROHN^S DISEASE
  3. ETANERCEPT [Concomitant]
     Active Substance: ETANERCEPT
     Indication: PSORIASIS
     Route: 058
     Dates: start: 20140606, end: 20151106
  4. HUMIRA [Concomitant]
     Active Substance: ADALIMUMAB
     Indication: PSORIASIS
     Route: 058
     Dates: start: 20141107, end: 20150707

REACTIONS (1)
  - Brain stem glioma [Not Recovered/Not Resolved]

NARRATIVE: CASE EVENT DATE: 20180702
